FAERS Safety Report 6052810-5 (Version None)
Quarter: 2009Q1

REPORT INFORMATION
  Report Type: 
  Country: None (occurrence: None)
  Receive Date: 20090122
  Receipt Date: 20090107
  Transmission Date: 20090719
  Serious: Yes (Death)
  Sender: FDA-Public Use
  Company Number: 2009SP000156

PATIENT
  Age: 59 Year
  Sex: Female

DRUGS (5)
  1. LUNESTA [Suspect]
     Dosage: ORAL
     Route: 048
  2. MORPHINE [Suspect]
     Dosage: ORAL
     Route: 048
  3. ANTIHISTAMINE + DECONGESTANT [Suspect]
     Dosage: ORAL
     Route: 048
  4. HYDROMORPHONE HYDROCHLORIDE [Suspect]
     Dosage: ORAL
     Route: 048
  5. VENLAFAXINE HYDROCHLORIDE [Suspect]
     Dosage: ORAL
     Route: 048

REACTIONS (1)
  - DEATH [None]
